FAERS Safety Report 9757143 (Version 1)
Quarter: 2013Q4

REPORT INFORMATION
  Report Type: Spontaneous
  Country: US (occurrence: US)
  Receive Date: 20131213
  Receipt Date: 20131213
  Transmission Date: 20140711
  Serious: Yes (Life-Threatening)
  Sender: FDA-Public Use
  Company Number: US-ASTRAZENECA-2013SE90861

PATIENT
  Age: 56 Year
  Sex: Male

DRUGS (2)
  1. LISINOPRIL [Suspect]
     Route: 048
  2. LISINOPRIL [Suspect]
     Route: 048

REACTIONS (5)
  - Coma [Not Recovered/Not Resolved]
  - Oxygen saturation decreased [Recovering/Resolving]
  - Pulse absent [Unknown]
  - Ventricular tachycardia [Unknown]
  - Angioedema [Unknown]
